FAERS Safety Report 9285991 (Version 1)
Quarter: 2013Q2

REPORT INFORMATION
  Report Type: Spontaneous
  Country: US (occurrence: None)
  Receive Date: 20130510
  Receipt Date: 20130510
  Transmission Date: 20140414
  Serious: Yes (Hospitalization, Disabling)
  Sender: FDA-Public Use
  Company Number: None

PATIENT
  Age: 26 Year
  Sex: Male
  Weight: 76.2 kg

DRUGS (2)
  1. NUCYNTA [Suspect]
     Indication: ROAD TRAFFIC ACCIDENT
     Dates: start: 200912, end: 201003
  2. NUCYNTA [Suspect]
     Indication: PAIN
     Dates: start: 200912, end: 201003

REACTIONS (1)
  - Pancreatitis [None]
